FAERS Safety Report 25678798 (Version 1)
Quarter: 2025Q3

REPORT INFORMATION
  Report Type: Spontaneous
  Country: US (occurrence: US)
  Receive Date: 20250814
  Receipt Date: 20250814
  Transmission Date: 20251020
  Serious: No
  Sender: SANOFI AVENTIS
  Company Number: US-SA-2025SA238065

PATIENT
  Sex: Female

DRUGS (13)
  1. DUPIXENT [Suspect]
     Active Substance: DUPILUMAB
     Indication: Dermatitis atopic
     Dosage: 300 MG, QOW
     Route: 058
  2. ATORVASTATIN [Concomitant]
     Active Substance: ATORVASTATIN
  3. CLOPIDOGREL [Concomitant]
     Active Substance: CLOPIDOGREL BISULFATE
  4. DEXAMETHASONE [Concomitant]
     Active Substance: DEXAMETHASONE
  5. FAMOTIDINE [Concomitant]
     Active Substance: FAMOTIDINE
  6. FLUCONAZOLE [Concomitant]
     Active Substance: FLUCONAZOLE
  7. GLIPIZIDE [Concomitant]
     Active Substance: GLIPIZIDE
  8. HYDROXYZINE [Concomitant]
     Active Substance: HYDROXYZINE HYDROCHLORIDE
  9. JARDIANCE [Concomitant]
     Active Substance: EMPAGLIFLOZIN
  10. METFORMIN HYDROCHLORIDE [Concomitant]
     Active Substance: METFORMIN HYDROCHLORIDE
  11. Methylprednis [Concomitant]
  12. MOMETASONE [Concomitant]
     Active Substance: MOMETASONE
  13. Triamcinolon [Concomitant]

REACTIONS (3)
  - Musculoskeletal stiffness [Unknown]
  - Psychiatric symptom [Unknown]
  - Eye irritation [Unknown]
